FAERS Safety Report 17713703 (Version 19)
Quarter: 2024Q2

REPORT INFORMATION
  Report Type: Report from Study
  Country: US (occurrence: US)
  Receive Date: 20200427
  Receipt Date: 20240419
  Transmission Date: 20240716
  Serious: Yes (Hospitalization, Other)
  Sender: FDA-Public Use
  Company Number: US-SHIRE-US202014090

PATIENT
  Age: 62 Year
  Sex: Female

DRUGS (2)
  1. HUMAN IMMUNOGLOBULIN G [Suspect]
     Active Substance: HUMAN IMMUNOGLOBULIN G
     Indication: Primary immunodeficiency syndrome
     Dosage: 40 GRAM, Q3WEEKS
     Route: 042
  2. HUMAN IMMUNOGLOBULIN G [Suspect]
     Active Substance: HUMAN IMMUNOGLOBULIN G
     Indication: Immunodeficiency common variable
     Dosage: UNK UNK, Q3WEEKS
     Route: 042
     Dates: start: 201906

REACTIONS (39)
  - Urinary tract infection [Unknown]
  - Gait disturbance [Unknown]
  - Musculoskeletal discomfort [Unknown]
  - Sinusitis [Unknown]
  - Pain [Unknown]
  - Pyrexia [Unknown]
  - Chills [Unknown]
  - Fatigue [Unknown]
  - Spinal compression fracture [Unknown]
  - Neuropathy peripheral [Unknown]
  - Post procedural haemorrhage [Unknown]
  - Thrombosis [Unknown]
  - Escherichia bacteraemia [Unknown]
  - Drug ineffective [Unknown]
  - Weight increased [Unknown]
  - Road traffic accident [Unknown]
  - Sciatica [Unknown]
  - Spinal stenosis [Unknown]
  - Tendonitis [Unknown]
  - Insurance issue [Unknown]
  - Platelet count decreased [Unknown]
  - Back disorder [Unknown]
  - Multiple injuries [Unknown]
  - Somnolence [Unknown]
  - Hypoaesthesia [Unknown]
  - White blood cell count decreased [Unknown]
  - Anaemia [Unknown]
  - Muscular weakness [Unknown]
  - Malaise [Unknown]
  - Pain in extremity [Unknown]
  - Migraine [Unknown]
  - Joint injury [Unknown]
  - Fall [Unknown]
  - Peripheral swelling [Not Recovered/Not Resolved]
  - Somnambulism [Unknown]
  - Limb injury [Unknown]
  - Lymphoedema [Unknown]
  - Oedema peripheral [Unknown]
  - Product use issue [Unknown]

NARRATIVE: CASE EVENT DATE: 20200420
